FAERS Safety Report 25036982 (Version 1)
Quarter: 2025Q1

REPORT INFORMATION
  Report Type: Spontaneous
  Country: JP (occurrence: JP)
  Receive Date: 20250304
  Receipt Date: 20250304
  Transmission Date: 20250409
  Serious: Yes (Death)
  Sender: MERCK SHARP & DOHME LLC
  Company Number: JP-009507513-2260228

PATIENT
  Sex: Male

DRUGS (3)
  1. KEYTRUDA [Suspect]
     Active Substance: PEMBROLIZUMAB
     Indication: Bile duct cancer stage IV
     Dosage: 200 MG, EVERY 3 WEEKS (Q3W)
     Route: 041
  2. CISPLATIN [Concomitant]
     Active Substance: CISPLATIN
  3. GEMCITABINE [Concomitant]
     Active Substance: GEMCITABINE

REACTIONS (1)
  - Malignant neoplasm progression [Fatal]
